FAERS Safety Report 7276705-4 (Version None)
Quarter: 2011Q1

REPORT INFORMATION
  Report Type: 
  Country: None (occurrence: None)
  Receive Date: 20110204
  Receipt Date: 20110131
  Transmission Date: 20110831
  Serious: Yes (Hospitalization)
  Sender: FDA-Public Use
  Company Number: FR-PFIZER INC-2011022006

PATIENT
  Age: 82 Year
  Sex: Male
  Weight: 60 kg

DRUGS (16)
  1. CRESTOR [Concomitant]
     Dosage: 5 UNK, ONE IN THE EVENING
  2. LOVENOX [Concomitant]
     Dosage: 0.4 ML, 2X/DAY
  3. TRAMADOL [Concomitant]
     Dosage: 100 UNK, ONCE PER DAY
  4. LANTUS [Concomitant]
     Dosage: 10 UNITS, DAILY
     Route: 058
  5. NOVONORM [Concomitant]
     Dosage: 4 MG, 3X/DAY
  6. ATACAND [Concomitant]
     Dosage: 32 UNK, ONCE IN THE MORNING
  7. SUTENT [Suspect]
     Indication: METASTATIC RENAL CELL CARCINOMA
     Dosage: 50 MG, 1X/DAY
     Dates: start: 20101221
  8. PARIET [Concomitant]
     Dosage: 20 UNK, ONCE IN THE EVENING
  9. DILTIAZEM HCL [Concomitant]
     Dosage: 120 UNK, 2X/DAY
  10. ATARAX [Concomitant]
     Dosage: 25 MG, 1X/DAY
  11. LEXOMIL [Concomitant]
     Dosage: UNK
  12. ZOPHREN [Concomitant]
     Dosage: 4 MG, 1X/DAY
  13. LASIX [Concomitant]
     Dosage: 40 MG, 1X/DAY
  14. NITROGLYCERIN [Concomitant]
     Dosage: 15 MG, UNK
  15. TOPALGIC [Concomitant]
     Indication: PAIN
     Dosage: 50 UNK, THREE TIMES A DAY
  16. DAFALGAN [Concomitant]
     Dosage: 1 G, 3X/DAY

REACTIONS (4)
  - ASTHENIA [None]
  - DECREASED APPETITE [None]
  - NAUSEA [None]
  - GENERAL PHYSICAL HEALTH DETERIORATION [None]
